FAERS Safety Report 19714085 (Version 1)
Quarter: 2021Q3

REPORT INFORMATION
  Report Type: Spontaneous
  Country: US (occurrence: US)
  Receive Date: 20210817
  Receipt Date: 20210817
  Transmission Date: 20211014
  Serious: No
  Sender: FDA-Public Use
  Company Number: None

PATIENT
  Sex: Male

DRUGS (1)
  1. HUMIRA [Suspect]
     Active Substance: ADALIMUMAB
     Indication: HIDRADENITIS
     Dosage: ?          OTHER DOSE:40/0.4 MG/ML;?
     Route: 058
     Dates: start: 20201106, end: 202106

REACTIONS (1)
  - Leukopenia [None]
